FAERS Safety Report 4787007-X (Version None)
Quarter: 2005Q3

REPORT INFORMATION
  Report Type: 
  Country: None (occurrence: None)
  Receive Date: 20050930
  Receipt Date: 20050210
  Transmission Date: 20060218
  Serious: Yes (Hospitalization)
  Sender: FDA-Public Use
  Company Number: 2005FR-00293

PATIENT
  Age: 58 Year
  Sex: Male

DRUGS (5)
  1. ASPIRIN [Suspect]
     Indication: ANGIOPLASTY
     Dosage: 150 MG, ORAL
     Route: 048
     Dates: start: 20040301, end: 20040925
  2. ASPIRIN [Suspect]
     Indication: MYOCARDIAL ISCHAEMIA
     Dosage: 150 MG, ORAL
     Route: 048
     Dates: start: 20040301, end: 20040925
  3. CLOPIDOGREL [Concomitant]
  4. ATENOLOL [Concomitant]
  5. SIMVASTATIN [Concomitant]

REACTIONS (2)
  - GASTRODUODENAL ULCER [None]
  - MELAENA [None]
